FAERS Safety Report 6910140-0 (Version None)
Quarter: 2010Q3

REPORT INFORMATION
  Report Type: 
  Country: None (occurrence: None)
  Receive Date: 20100806
  Receipt Date: 20100727
  Transmission Date: 20110219
  Serious: Yes (Hospitalization, Other)
  Sender: FDA-Public Use
  Company Number: US-ELI_LILLY_AND_COMPANY-US201007005435

PATIENT
  Sex: Female
  Weight: 72.562 kg

DRUGS (8)
  1. BYETTA [Suspect]
     Indication: TYPE 2 DIABETES MELLITUS
     Dosage: 5 UG, 2/D
     Route: 058
  2. BYETTA [Suspect]
     Dosage: 10 UG, 2/D
     Route: 058
  3. BYETTA [Suspect]
     Dosage: 5 UG, UNKNOWN
     Route: 058
  4. BYETTA [Suspect]
     Dosage: UNK, UNKNOWN
     Route: 058
  5. METFORMIN HCL [Concomitant]
     Indication: TYPE 2 DIABETES MELLITUS
     Dosage: UNK D/F, UNK
     Route: 048
  6. METFORMIN HCL [Concomitant]
     Dosage: 500 MG, 2/D
     Route: 048
  7. LOTEMAX [Concomitant]
     Indication: CORNEAL TRANSPLANT
     Dosage: 1 D/F, DAILY (1/D)
     Route: 047
  8. FLONASE [Concomitant]
     Indication: HYPERSENSITIVITY
     Dosage: UNK D/F, AS NEEDED
     Route: 045

REACTIONS (7)
  - ABDOMINAL PAIN UPPER [None]
  - APPENDICITIS [None]
  - BACK PAIN [None]
  - CHOLELITHIASIS [None]
  - DECREASED APPETITE [None]
  - PANCREATITIS [None]
  - WEIGHT DECREASED [None]
